FAERS Safety Report 14944820 (Version 1)
Quarter: 2018Q2

REPORT INFORMATION
  Report Type: Spontaneous
  Country: FR (occurrence: FR)
  Receive Date: 20180529
  Receipt Date: 20180529
  Transmission Date: 20180711
  Serious: Yes (Hospitalization)
  Sender: FDA-Public Use
  Company Number: FR-MERCK KGAA-2048555

PATIENT
  Age: 50 Year
  Sex: Female

DRUGS (1)
  1. NOVOTHYROX [Suspect]
     Active Substance: LEVOTHYROXINE SODIUM
     Indication: HYPOTHYROIDISM
     Dates: start: 201701

REACTIONS (33)
  - Anxiety [None]
  - Amnesia [None]
  - Feeling abnormal [None]
  - Depression [None]
  - Disturbance in attention [None]
  - Eosinophil count increased [None]
  - Very low density lipoprotein increased [None]
  - Muscle spasms [None]
  - Anti-thyroid antibody positive [None]
  - Monocyte count increased [None]
  - Blood triglycerides increased [Not Recovered/Not Resolved]
  - Self esteem decreased [None]
  - Personal relationship issue [None]
  - Palpitations [None]
  - Mean cell volume increased [None]
  - Tremor [None]
  - Decreased interest [None]
  - Asthenia [None]
  - Blood cholesterol increased [None]
  - Total cholesterol/HDL ratio increased [None]
  - Insomnia [None]
  - Cold sweat [None]
  - Impaired work ability [None]
  - Platelet count increased [None]
  - Basophil count increased [None]
  - Thyroxine free decreased [Recovered/Resolved]
  - Mood swings [None]
  - Headache [None]
  - Malaise [None]
  - Lymphocyte count increased [None]
  - Blood thyroid stimulating hormone increased [Recovered/Resolved]
  - Fatigue [None]
  - Vertigo [None]

NARRATIVE: CASE EVENT DATE: 2017
